FAERS Safety Report 24899574 (Version 3)
Quarter: 2025Q2

REPORT INFORMATION
  Report Type: Spontaneous
  Country: US (occurrence: US)
  Receive Date: 20250129
  Receipt Date: 20250626
  Transmission Date: 20250717
  Serious: Yes (Other)
  Sender: PFIZER
  Company Number: US-PFIZER INC-202500000554

PATIENT
  Age: 80 Year
  Sex: Female
  Weight: 61.69 kg

DRUGS (5)
  1. IBRANCE [Suspect]
     Active Substance: PALBOCICLIB
     Indication: Breast cancer female
     Route: 048
     Dates: start: 201707
  2. IBRANCE [Suspect]
     Active Substance: PALBOCICLIB
     Indication: Neoplasm malignant
  3. FASLODEX [Concomitant]
     Active Substance: FULVESTRANT
     Dates: start: 2017
  4. XGEVA [Concomitant]
     Active Substance: DENOSUMAB
     Indication: Bone cancer
     Dosage: INJECTION ONCE EVERY THREE MONTHS
     Dates: start: 2017
  5. VITAMIN B12 [Concomitant]
     Active Substance: CYANOCOBALAMIN
     Indication: Neoplasm malignant
     Dates: start: 20250620

REACTIONS (5)
  - Rotator cuff syndrome [Unknown]
  - Pain [Unknown]
  - Nervousness [Unknown]
  - Stress [Unknown]
  - Malaise [Unknown]
